FAERS Safety Report 6590695-9 (Version None)
Quarter: 2010Q1

REPORT INFORMATION
  Report Type: 
  Country: None (occurrence: None)
  Receive Date: 20100219
  Receipt Date: 20100215
  Transmission Date: 20100710
  Serious: Yes (Life-Threatening, Hospitalization)
  Sender: FDA-Public Use
  Company Number: D0066473A

PATIENT
  Sex: Female

DRUGS (25)
  1. SULTANOL [Suspect]
     Route: 055
     Dates: start: 20071207
  2. VIANI [Suspect]
     Route: 055
     Dates: start: 20071209
  3. PARACETAMOL [Suspect]
     Route: 065
     Dates: start: 20071201
  4. SOLU-DECORTIN-H [Suspect]
     Dosage: 5MG VARIABLE DOSE
     Route: 042
     Dates: start: 20071207, end: 20071216
  5. CHLORALHYDRAT [Suspect]
     Indication: SEDATION
     Route: 065
     Dates: start: 20071201
  6. CEFAZOLIN [Suspect]
     Indication: PNEUMONIA
     Dosage: 300MG THREE TIMES PER DAY
     Route: 042
     Dates: start: 20071207, end: 20071221
  7. SODIUM CHLORIDE 0.9% [Suspect]
     Indication: FLUID REPLACEMENT
     Route: 042
     Dates: start: 20071207
  8. BRONCHOPARAT [Suspect]
     Route: 042
     Dates: start: 20071209, end: 20071211
  9. 5% GLUCOSE [Suspect]
     Route: 042
     Dates: start: 20071209, end: 20071215
  10. SINGULAIR [Suspect]
     Dosage: 4MG PER DAY
     Route: 048
     Dates: start: 20071209
  11. GENTAMICIN [Suspect]
     Indication: PNEUMONIA
     Dosage: 38MG UNKNOWN
     Route: 042
     Dates: start: 20071210, end: 20071215
  12. MORPHIN [Suspect]
     Indication: PAIN
     Dosage: 10MG UNKNOWN
     Route: 042
     Dates: start: 20071211, end: 20071215
  13. NEXIUM [Suspect]
     Indication: PROPHYLAXIS
     Dosage: 10MG PER DAY
     Route: 042
     Dates: start: 20071212, end: 20071215
  14. MORONAL [Suspect]
     Indication: ANTIFUNGAL PROPHYLAXIS
     Route: 050
     Dates: start: 20071212
  15. LACTULOSE [Suspect]
     Indication: CONSTIPATION
     Dosage: 5ML TWICE PER DAY
     Route: 048
     Dates: start: 20071213, end: 20071224
  16. ACETYLCYSTEINE [Suspect]
     Dosage: 100MG TWICE PER DAY
     Route: 048
     Dates: start: 20071218
  17. UNSPECIFIED MEDICATION [Suspect]
     Route: 048
     Dates: start: 20071213
  18. FLUTIDE MITE [Concomitant]
     Indication: MUSCULAR DYSTROPHY
     Route: 055
     Dates: start: 20060101, end: 20071208
  19. ALBUTEROL [Concomitant]
     Indication: COUGH
     Route: 055
     Dates: start: 20071127, end: 20071207
  20. CEFPODOXIME PROXETIL [Concomitant]
     Route: 048
     Dates: start: 20071201, end: 20071207
  21. DORMICUM [Concomitant]
     Indication: SEDATION
     Dosage: 50MG SINGLE DOSE
     Route: 042
     Dates: start: 20071210, end: 20071210
  22. NOVALGIN [Concomitant]
     Dosage: 100MG SINGLE DOSE
     Route: 042
     Dates: start: 20071225, end: 20071225
  23. IBUPROFEN [Concomitant]
     Dosage: 120MG UNKNOWN
     Route: 048
     Dates: start: 20071225
  24. FENISTIL [Concomitant]
     Route: 048
     Dates: start: 20071225
  25. ZITHROMAX [Concomitant]
     Indication: INFECTION
     Dosage: 100MG PER DAY
     Route: 048

REACTIONS (17)
  - BLISTER [None]
  - BRONCHITIS [None]
  - CONSTIPATION [None]
  - DYSPNOEA [None]
  - GENITAL EROSION [None]
  - LIP EROSION [None]
  - MUCOSAL EROSION [None]
  - OCULAR HYPERAEMIA [None]
  - ORAL MUCOSA EROSION [None]
  - PAIN [None]
  - PNEUMONIA [None]
  - PROTEIN TOTAL ABNORMAL [None]
  - PYREXIA [None]
  - RASH [None]
  - RASH MACULAR [None]
  - STEVENS-JOHNSON SYNDROME [None]
  - TOXIC EPIDERMAL NECROLYSIS [None]
